FAERS Safety Report 7380113-5 (Version None)
Quarter: 2011Q1

REPORT INFORMATION
  Report Type: 
  Country: None (occurrence: None)
  Receive Date: 20110329
  Receipt Date: 20100421
  Transmission Date: 20110831
  Serious: No
  Sender: FDA-Public Use
  Company Number: US-MYLANLABS-2010S1007149

PATIENT
  Sex: Female

DRUGS (1)
  1. ESTRADIOL [Suspect]
     Indication: MENOPAUSE
     Route: 062

REACTIONS (3)
  - MENOPAUSE [None]
  - APPLICATION SITE EROSION [None]
  - DRUG INEFFECTIVE [None]
